FAERS Safety Report 8074651-X (Version None)
Quarter: 2012Q1

REPORT INFORMATION
  Report Type: 
  Country: None (occurrence: None)
  Receive Date: 20120126
  Receipt Date: 20120118
  Transmission Date: 20120608
  Serious: Yes (Death, Hospitalization)
  Sender: FDA-Public Use
  Company Number: PHHY2011NL101956

PATIENT
  Sex: Female
  Weight: 50 kg

DRUGS (8)
  1. ZOMETA [Suspect]
     Indication: METASTASES TO BONE
     Dosage: 4 MG, PER 5 ML
     Route: 042
     Dates: end: 20111020
  2. MOVICOLON [Concomitant]
  3. VESICARE [Concomitant]
  4. HYDROCHLOROTHIAZIDE [Concomitant]
  5. PANTOPRAZOLE [Concomitant]
  6. TEMAZEPAM [Concomitant]
  7. FOSTER [Concomitant]
  8. SELOKEEN [Concomitant]

REACTIONS (18)
  - CHEST PAIN [None]
  - RENAL IMPAIRMENT [None]
  - PLEURAL EFFUSION [None]
  - ATELECTASIS [None]
  - GENERAL PHYSICAL HEALTH DETERIORATION [None]
  - DEHYDRATION [None]
  - CONSTIPATION [None]
  - PLEURISY [None]
  - LYMPHADENOPATHY [None]
  - HAEMOGLOBIN DECREASED [None]
  - FATIGUE [None]
  - ABDOMINAL DISTENSION [None]
  - ILEUS [None]
  - METASTASES TO BONE [None]
  - DYSPNOEA [None]
  - MALAISE [None]
  - METASTASES TO LUNG [None]
  - ABDOMINAL PAIN [None]
